FAERS Safety Report 6347175-5 (Version None)
Quarter: 2009Q3

REPORT INFORMATION
  Report Type: 
  Country: None (occurrence: None)
  Receive Date: 20090910
  Receipt Date: 20090901
  Transmission Date: 20100115
  Serious: Yes (Other)
  Sender: FDA-Public Use
  Company Number: PHHY2009NO37130

PATIENT
  Age: 7 Year
  Sex: Female

DRUGS (2)
  1. RITALIN [Suspect]
  2. STRATTERA [Suspect]

REACTIONS (4)
  - DYSPNOEA [None]
  - HYPERVENTILATION [None]
  - REGURGITATION [None]
  - VOMITING [None]
